FAERS Safety Report 25995384 (Version 2)
Quarter: 2025Q4

REPORT INFORMATION
  Report Type: Spontaneous
  Country: US (occurrence: None)
  Receive Date: 20251104
  Receipt Date: 20251229
  Transmission Date: 20260119
  Serious: No
  Sender: APOTEX
  Company Number: US-APOTEX-2025AP031381

PATIENT
  Sex: Female

DRUGS (1)
  1. AZELASTINE [Suspect]
     Active Substance: AZELASTINE
     Indication: Product used for unknown indication
     Dosage: 2 DOSAGE FORM, QD

REACTIONS (2)
  - Product dose omission issue [Unknown]
  - Product odour abnormal [Unknown]

NARRATIVE: CASE EVENT DATE: 20251001
